FAERS Safety Report 4685693-6 (Version None)
Quarter: 2005Q2

REPORT INFORMATION
  Report Type: 
  Country: None (occurrence: None)
  Receive Date: 20050608
  Receipt Date: 20050527
  Transmission Date: 20051028
  Serious: Yes (Hospitalization)
  Sender: FDA-Public Use
  Company Number: 2004-06-0043

PATIENT
  Age: 59 Year
  Sex: Male
  Weight: 64 kg

DRUGS (10)
  1. INTRON A [Suspect]
     Indication: HEPATITIS C
     Dosage: SEE IMAGE,  INTRAMUSCULAR
     Route: 030
     Dates: start: 20040130, end: 20040211
  2. INTRON A [Suspect]
     Indication: HEPATITIS C
     Dosage: SEE IMAGE,  INTRAMUSCULAR
     Route: 030
     Dates: start: 20040130, end: 20040521
  3. INTRON A [Suspect]
     Indication: HEPATITIS C
     Dosage: SEE IMAGE,  INTRAMUSCULAR
     Route: 030
     Dates: start: 20040213, end: 20040521
  4. REBETOL [Suspect]
     Indication: HEPATITIS C
     Dosage: 800 MG ORAL
     Route: 048
     Dates: start: 20040130, end: 20040521
  5. FERON [Concomitant]
  6. AMANTADINE HYDROCHLORIDE TABLETS [Concomitant]
  7. ALOSITOL [Concomitant]
  8. OMEPRAL (OMEPRAZOLE) TABLETS [Concomitant]
  9. KLARICID TABLETS [Concomitant]
  10. PASETOCIN CAPSULES [Concomitant]

REACTIONS (4)
  - ANAEMIA [None]
  - HELICOBACTER PYLORI IDENTIFICATION TEST POSITIVE [None]
  - IDIOPATHIC THROMBOCYTOPENIC PURPURA [None]
  - THERAPEUTIC RESPONSE DECREASED [None]
